FAERS Safety Report 7685829-9 (Version None)
Quarter: 2011Q3

REPORT INFORMATION
  Report Type: 
  Country: None (occurrence: None)
  Receive Date: 20110816
  Receipt Date: 20110804
  Transmission Date: 20111222
  Serious: No
  Sender: FDA-Public Use
  Company Number: US-B.I. PHARMACEUTICALS,INC./RIDGEFIELD-2011-BP-19270BP

PATIENT
  Sex: Male

DRUGS (6)
  1. ASPIRIN [Concomitant]
     Indication: PROPHYLAXIS
     Dosage: 81 MG
     Route: 048
  2. OSTEOBIFLEX [Concomitant]
     Indication: ARTHRITIS
     Route: 048
  3. PRADAXA [Suspect]
     Indication: CARDIAC DISORDER
     Dosage: 300 MG
     Route: 048
     Dates: start: 20110501
  4. SAW PALMETTO [Concomitant]
     Indication: PROSTATIC DISORDER
     Route: 048
  5. TEMAZEPAM [Concomitant]
     Indication: INSOMNIA
     Dosage: 30 MG
     Route: 048
     Dates: end: 20110701
  6. MEDICATION NOT FURTHER SPECIFIED [Concomitant]
     Indication: CARDIAC DISORDER

REACTIONS (3)
  - DYSPEPSIA [None]
  - MELAENA [None]
  - DRUG INEFFECTIVE [None]
